FAERS Safety Report 26092078 (Version 1)
Quarter: 2025Q4

REPORT INFORMATION
  Report Type: Spontaneous
  Country: GB (occurrence: GB)
  Receive Date: 20251126
  Receipt Date: 20251126
  Transmission Date: 20260117
  Serious: Yes (Other)
  Sender: MYLAN
  Company Number: None

PATIENT
  Age: 62 Year
  Sex: Female
  Weight: 78 kg

DRUGS (14)
  1. REMIFENTANIL [Interacting]
     Active Substance: REMIFENTANIL
     Indication: General anaesthesia
     Dosage: UNK
  2. OXYCODONE [Interacting]
     Active Substance: OXYCODONE
     Indication: General anaesthesia
     Dosage: UNK
  3. IBUPROFEN [Interacting]
     Active Substance: IBUPROFEN
     Indication: Product used for unknown indication
     Dosage: UNK
  4. ONDANSETRON [Interacting]
     Active Substance: ONDANSETRON
     Indication: Product used for unknown indication
     Dosage: UNK
  5. ROCURONIUM [Interacting]
     Active Substance: ROCURONIUM BROMIDE
     Indication: Product used for unknown indication
     Dosage: UNK
  6. NEOMYCIN [Interacting]
     Active Substance: NEOMYCIN
     Indication: Haemorrhage prophylaxis
     Dosage: UNK (ONE PACK FOR EACH NOSTRIL , REMOVED ONNCE NOTED RASH IN RECOVERY)
  7. POLYMYXIN [Interacting]
     Active Substance: POLYMYXIN
     Indication: Haemorrhage prophylaxis
     Dosage: UNK (1 PACK FOR EACH NOSTRIL)
  8. SUGAMMADEX [Interacting]
     Active Substance: SUGAMMADEX
     Indication: Anaesthesia reversal
     Dosage: UNK
  9. SUGAMMADEX [Interacting]
     Active Substance: SUGAMMADEX
     Indication: Ill-defined disorder
  10. MIDAZOLAM [Interacting]
     Active Substance: MIDAZOLAM
     Indication: Anxiety
     Dosage: UNK
  11. PROPOFOL [Interacting]
     Active Substance: PROPOFOL
     Indication: General anaesthesia
     Dosage: UNK
  12. ACETAMINOPHEN [Interacting]
     Active Substance: ACETAMINOPHEN
     Indication: Product used for unknown indication
     Dosage: UNK
  13. LIDOCAINE HYDROCHLORIDE [Interacting]
     Active Substance: LIDOCAINE HYDROCHLORIDE
     Indication: Adjuvant therapy
     Dosage: UNK
  14. DEXAMETHASONE [Interacting]
     Active Substance: DEXAMETHASONE
     Indication: Haemorrhage prophylaxis
     Dosage: UNK (ONE PACK FOR EACH NOSTRIL ,REMOVED ONNCE NOTED RASH IN RECOVERY)

REACTIONS (3)
  - Drug interaction [Unknown]
  - Rash pruritic [Recovering/Resolving]
  - Pallor [Unknown]

NARRATIVE: CASE EVENT DATE: 20251118
